FAERS Safety Report 9536382 (Version 1)
Quarter: 2013Q2

REPORT INFORMATION
  Report Type: Spontaneous
  Country: US (occurrence: None)
  Receive Date: 20130517
  Receipt Date: 20130517
  Transmission Date: 20140414
  Serious: No
  Sender: FDA-Public Use
  Company Number: 1000042115

PATIENT
  Age: 39 Year
  Sex: Male

DRUGS (4)
  1. VIIBRYD (VILAZODONE HYDROCHLORIDE) (10 MILLIGRAM, TABLETS) [Suspect]
     Indication: DEPRESSION
     Route: 048
     Dates: start: 20130121
  2. VIIBRYD (VILAZODONE HYDROCHLORIDE) (10 MILLIGRAM, TABLETS) [Suspect]
     Indication: CHRONIC FATIGUE SYNDROME
     Route: 048
     Dates: start: 20130121
  3. INVEGA (PALIPERIDONE) (PALIPERIDONE) [Concomitant]
  4. VISTARIL (HYDROXYZINE) (HYDROXYZINE) [Concomitant]

REACTIONS (2)
  - Tremor [None]
  - Muscle spasms [None]
